FAERS Safety Report 7218875-X (Version None)
Quarter: 2011Q1

REPORT INFORMATION
  Report Type: 
  Country: None (occurrence: None)
  Receive Date: 20110110
  Receipt Date: 20110106
  Transmission Date: 20110831
  Serious: No
  Sender: FDA-Public Use
  Company Number: US-PFIZER INC-2011004186

PATIENT
  Sex: Female

DRUGS (4)
  1. ZOLOFT [Suspect]
     Dosage: UNK
  2. EFFEXOR [Suspect]
     Dosage: UNK
  3. CYMBALTA [Concomitant]
     Dosage: UNK
  4. ABILIFY [Concomitant]
     Dosage: UNK

REACTIONS (2)
  - DIZZINESS [None]
  - FEELING ABNORMAL [None]
